FAERS Safety Report 5677526-6 (Version None)
Quarter: 2008Q1

REPORT INFORMATION
  Report Type: 
  Country: None (occurrence: None)
  Receive Date: 20080324
  Receipt Date: 20080312
  Transmission Date: 20080703
  Serious: Yes (Hospitalization)
  Sender: FDA-Public Use
  Company Number: US-ELI_LILLY_AND_COMPANY-US200709000187

PATIENT
  Sex: Female
  Weight: 63.039 kg

DRUGS (6)
  1. FORTEO [Suspect]
     Indication: OSTEOPOROSIS
     Dosage: 20 UG, DAILY (1/D)
     Dates: start: 20070101, end: 20070807
  2. PREDNISON [Concomitant]
     Indication: CROHN'S DISEASE
     Dosage: 10 MG, UNK
     Dates: start: 20070616, end: 20070707
  3. ZOLOFT [Concomitant]
     Dosage: 100 MG, UNK
  4. ACIPHEX [Concomitant]
     Dosage: 20 MG, UNK
  5. ZOVIRAX                                 /GRC/ [Concomitant]
     Dosage: 400 MG, UNK
  6. AZULFIDINE EN-TABS [Concomitant]

REACTIONS (3)
  - INTESTINAL OBSTRUCTION [None]
  - MUSCLE SPASMS [None]
  - NAUSEA [None]
